FAERS Safety Report 19847850 (Version 1)
Quarter: 2021Q3

REPORT INFORMATION
  Report Type: Spontaneous
  Country: US (occurrence: US)
  Receive Date: 20210917
  Receipt Date: 20210917
  Transmission Date: 20211014
  Serious: No
  Sender: FDA-Public Use
  Company Number: US-LUPIN PHARMACEUTICALS INC.-2021-17266

PATIENT
  Age: 29 Year
  Sex: Female

DRUGS (2)
  1. HYDROXYCHLOROQUINE [Suspect]
     Active Substance: HYDROXYCHLOROQUINE
     Indication: GRANULOMA ANNULARE
     Dosage: UNK
     Route: 065
  2. APREMILAST [Concomitant]
     Active Substance: APREMILAST
     Indication: GRANULOMA ANNULARE
     Dosage: UNK
     Route: 048

REACTIONS (1)
  - Treatment failure [Unknown]
